FAERS Safety Report 7396232-3 (Version None)
Quarter: 2011Q2

REPORT INFORMATION
  Report Type: 
  Country: None (occurrence: None)
  Receive Date: 20110406
  Receipt Date: 20110328
  Transmission Date: 20111010
  Serious: Yes (Hospitalization)
  Sender: FDA-Public Use
  Company Number: FR-NOVOPROD-322633

PATIENT
  Age: 64 Year
  Sex: Male
  Weight: 101 kg

DRUGS (11)
  1. FOSINOPRIL SODIUM AND HYDROCHLOROTHIAZIDE [Concomitant]
  2. NOVORAPID [Concomitant]
  3. LYRICA [Concomitant]
  4. PLAVIX [Concomitant]
  5. ALLOPURINOL [Concomitant]
  6. CARDENSIEL [Concomitant]
     Dosage: 10 MG, QD
     Route: 048
  7. PYOSTACINE [Concomitant]
  8. VICTOZA [Suspect]
     Indication: TYPE 2 DIABETES MELLITUS
     Dosage: 1.6 MG, QD
     Route: 058
     Dates: start: 20101201, end: 20110121
  9. NEXIUM [Concomitant]
  10. TAHOR [Concomitant]
  11. NITROGLYCERIN [Concomitant]

REACTIONS (1)
  - PALPITATIONS [None]
